FAERS Safety Report 12594130 (Version 2)
Quarter: 2016Q3

REPORT INFORMATION
  Report Type: Spontaneous
  Country: US (occurrence: US)
  Receive Date: 20160726
  Receipt Date: 20160826
  Transmission Date: 20161109
  Serious: Yes (Death, Other)
  Sender: FDA-Public Use
  Company Number: US-AUROBINDO-AUR-APL-2016-09398

PATIENT
  Age: 25 Year
  Sex: Male

DRUGS (3)
  1. METHADONE HYDROCHLORIDE TABLET USP 10MG [Suspect]
     Active Substance: METHADONE HYDROCHLORIDE
     Dosage: 1 TABLET IN THE MORNING
     Route: 065
  2. METHADONE HYDROCHLORIDE TABLET USP 10MG [Suspect]
     Active Substance: METHADONE HYDROCHLORIDE
     Indication: PAIN MANAGEMENT
     Dosage: 2 TABLETS (TOTAL 20MG) OF METHADONE ON THE DAY OF THE SURGERY
     Route: 065
  3. METHADONE HYDROCHLORIDE TABLET USP 10MG [Suspect]
     Active Substance: METHADONE HYDROCHLORIDE
     Dosage: 2 TABLETS THRICE A DAY ON THE DAY BEFORE HIS DEATH
     Route: 065

REACTIONS (5)
  - Respiratory failure [Fatal]
  - Drug prescribing error [Fatal]
  - Toxicity to various agents [Fatal]
  - Unresponsive to stimuli [Unknown]
  - Pulmonary oedema [Fatal]
